FAERS Safety Report 21632269 (Version 1)
Quarter: 2022Q4

REPORT INFORMATION
  Report Type: Spontaneous
  Country: US (occurrence: US)
  Receive Date: 20221123
  Receipt Date: 20221123
  Transmission Date: 20230113
  Serious: Yes (Hospitalization, Other)
  Sender: FDA-Public Use
  Company Number: US-ALKEM LABORATORIES LIMITED-US-ALKEM-2022-12536

PATIENT
  Age: 3 Year
  Sex: Male

DRUGS (5)
  1. LACOSAMIDE [Interacting]
     Active Substance: LACOSAMIDE
     Indication: Status epilepticus
     Dosage: UNK
     Route: 065
  2. LACOSAMIDE [Interacting]
     Active Substance: LACOSAMIDE
     Dosage: 50 MILLIGRAM
     Route: 065
  3. LACOSAMIDE [Interacting]
     Active Substance: LACOSAMIDE
     Dosage: 50 MILLIGRAM (REPEATED ROUGHLY)
     Route: 065
  4. FLECAINIDE [Interacting]
     Active Substance: FLECAINIDE
     Indication: Arrhythmia
     Dosage: UNK
     Route: 065
  5. FLECAINIDE [Interacting]
     Active Substance: FLECAINIDE
     Dosage: 0.19 MICROGRAM/ML
     Route: 065

REACTIONS (3)
  - Atrial tachycardia [Recovered/Resolved]
  - Seizure [Recovered/Resolved]
  - Drug interaction [Unknown]
